FAERS Safety Report 21556655 (Version 1)
Quarter: 2022Q4

REPORT INFORMATION
  Report Type: Spontaneous
  Country: TR (occurrence: TR)
  Receive Date: 20221104
  Receipt Date: 20221104
  Transmission Date: 20230113
  Serious: Yes (Hospitalization)
  Sender: FDA-Public Use
  Company Number: TR-JNJFOC-20221058379

PATIENT
  Age: 30 Year
  Sex: Male

DRUGS (5)
  1. RISPERDAL [Suspect]
     Active Substance: RISPERIDONE
     Indication: Bipolar I disorder
     Route: 065
  2. RISPERDAL [Suspect]
     Active Substance: RISPERIDONE
     Route: 065
  3. QUETIAPINE [Suspect]
     Active Substance: QUETIAPINE
     Indication: Bipolar I disorder
     Route: 065
  4. LITHIUM [Suspect]
     Active Substance: LITHIUM
     Indication: Bipolar I disorder
     Route: 065
  5. LITHIUM [Suspect]
     Active Substance: LITHIUM
     Route: 065

REACTIONS (2)
  - Dystonia [Not Recovered/Not Resolved]
  - Joint dislocation [Not Recovered/Not Resolved]
